FAERS Safety Report 8862479 (Version 1)
Quarter: 2012Q4

REPORT INFORMATION
  Report Type: 
  Country: US (occurrence: US)
  Receive Date: 20121026
  Receipt Date: 20121026
  Transmission Date: 20130627
  Serious: No
  Sender: FDA-Public Use
  Company Number: US-ALLERGAN-1203952US

PATIENT
  Age: 84 Year
  Sex: Female

DRUGS (8)
  1. ALPHAGAN� P [Suspect]
     Indication: GLAUCOMA
     Dosage: 2 Gtt, bid
     Route: 047
     Dates: start: 20120315
  2. ALPHAGAN� P [Suspect]
     Dosage: 2 Gtt, qd
     Route: 047
     Dates: start: 2011, end: 20120315
  3. RESTASIS [Suspect]
     Indication: DRY EYES
     Dosage: 2 Gtt, qd
     Route: 047
     Dates: start: 20120315
  4. SYSTANE [Concomitant]
     Indication: DRY EYES
     Dosage: 2 Gtt, prn
     Route: 047
  5. XANAX [Concomitant]
     Indication: ANXIETY
     Dosage: 1 UNK, prn
     Route: 048
  6. ZOLOFT [Concomitant]
     Indication: DEPRESSION
     Dosage: 1 DF, qd
     Route: 048
  7. NEXIUM [Concomitant]
     Indication: GERD
     Dosage: 1 DF, qd
     Route: 048
  8. LEVOTHROID [Concomitant]
     Indication: HYPOTHYROIDISM
     Dosage: 1 DF, qd
     Route: 048

REACTIONS (5)
  - Intraocular pressure increased [Unknown]
  - Hypotension [Unknown]
  - Dizziness [Recovering/Resolving]
  - Fatigue [Not Recovered/Not Resolved]
  - Fall [Unknown]
